FAERS Safety Report 12682355 (Version 2)
Quarter: 2016Q3

REPORT INFORMATION
  Report Type: Spontaneous
  Country: DE (occurrence: DE)
  Receive Date: 20160825
  Receipt Date: 20160908
  Transmission Date: 20161109
  Serious: Yes (Disabling)
  Sender: FDA-Public Use
  Company Number: DE-ROCHE-1819495

PATIENT
  Age: 60 Year
  Sex: Male
  Weight: 100 kg

DRUGS (7)
  1. HUMAN INSULIN [Concomitant]
     Active Substance: INSULIN HUMAN
     Indication: DIABETES MELLITUS
     Route: 058
  2. L-THYROXIN [Concomitant]
     Active Substance: LEVOTHYROXINE SODIUM
  3. PANTOPRAZOL [Concomitant]
     Active Substance: PANTOPRAZOLE SODIUM
  4. MABTHERA [Suspect]
     Active Substance: RITUXIMAB
     Indication: GRANULOMATOSIS WITH POLYANGIITIS
     Dosage: 2 ADMINISTRATIONS?03/MAY/2016, RECEIVED MOST RECENT DOSE OF RITUXIMAB
     Route: 042
     Dates: start: 20160426
  5. DEKRISTOL [Concomitant]
     Active Substance: CHOLECALCIFEROL
  6. PREDNISOLON [Concomitant]
     Active Substance: PREDNISOLONE
     Indication: GRANULOMATOSIS WITH POLYANGIITIS
     Route: 048
     Dates: start: 201505
  7. AZATHIOPRINE. [Concomitant]
     Active Substance: AZATHIOPRINE
     Indication: GRANULOMATOSIS WITH POLYANGIITIS
     Route: 048
     Dates: start: 2016

REACTIONS (1)
  - Retinal artery occlusion [Not Recovered/Not Resolved]

NARRATIVE: CASE EVENT DATE: 20160615
